FAERS Safety Report 22618121 (Version 1)
Quarter: 2023Q2

REPORT INFORMATION
  Report Type: Report from Study
  Country: CA (occurrence: CA)
  Receive Date: 20230620
  Receipt Date: 20230620
  Transmission Date: 20230722
  Serious: Yes (Other)
  Sender: FDA-Public Use
  Company Number: CA-PFM-2022-07226

PATIENT
  Age: 47 Year
  Sex: Male

DRUGS (7)
  1. PROPRANOLOL HYDROCHLORIDE [Suspect]
     Active Substance: PROPRANOLOL HYDROCHLORIDE
     Indication: Product used for unknown indication
     Dosage: UNK
     Route: 065
  2. AMLODIPINE BESYLATE [Suspect]
     Active Substance: AMLODIPINE BESYLATE
     Indication: Product used for unknown indication
     Dosage: UNK
     Route: 065
  3. DESVENLAFAXINE [Suspect]
     Active Substance: DESVENLAFAXINE
     Indication: Product used for unknown indication
     Dosage: UNK
     Route: 065
  4. ALBUTEROL [Suspect]
     Active Substance: ALBUTEROL
     Indication: Product used for unknown indication
     Dosage: UNK
     Route: 065
  5. ATROVENT [Concomitant]
     Active Substance: IPRATROPIUM BROMIDE
     Indication: Product used for unknown indication
     Dosage: UNK
     Route: 065
  6. EPIPEN JR [Concomitant]
     Active Substance: EPINEPHRINE
     Indication: Product used for unknown indication
     Dosage: UNK
     Route: 030
  7. SOLU-MEDROL [Concomitant]
     Active Substance: METHYLPREDNISOLONE SODIUM SUCCINATE
     Indication: Product used for unknown indication
     Dosage: UNK
     Route: 042

REACTIONS (23)
  - Alcohol interaction [Unknown]
  - Anaphylactic reaction [Unknown]
  - Angioedema [Unknown]
  - Blunted affect [Unknown]
  - Conjunctivitis allergic [Unknown]
  - Dizziness [Unknown]
  - Dyspnoea [Unknown]
  - Eye swelling [Unknown]
  - Hypersensitivity [Unknown]
  - Injury [Unknown]
  - Lip swelling [Unknown]
  - Mouth swelling [Unknown]
  - Oxygen saturation decreased [Unknown]
  - Pharyngeal swelling [Unknown]
  - Pruritus [Unknown]
  - Seasonal allergy [Unknown]
  - Swollen tongue [Unknown]
  - Syncope [Unknown]
  - Throat tightness [Unknown]
  - Urticaria [Unknown]
  - Wheezing [Unknown]
  - Product use issue [Unknown]
  - Off label use [Unknown]
